FAERS Safety Report 23388689 (Version 1)
Quarter: 2024Q1

REPORT INFORMATION
  Report Type: Spontaneous
  Country: US (occurrence: US)
  Receive Date: 20240110
  Receipt Date: 20240110
  Transmission Date: 20240410
  Serious: Yes (Death, Hospitalization)
  Sender: FDA-Public Use
  Company Number: US-BAYER-2024A002324

PATIENT
  Age: 62 Year
  Sex: Female

DRUGS (6)
  1. ASPIRIN [Suspect]
     Active Substance: ASPIRIN
     Dosage: UNK
     Route: 048
  2. RISPERIDONE [Suspect]
     Active Substance: RISPERIDONE
  3. HYDROXYZINE [Suspect]
     Active Substance: HYDROXYZINE HYDROCHLORIDE
  4. GABAPENTIN [Suspect]
     Active Substance: GABAPENTIN
  5. DULOXETINE [Suspect]
     Active Substance: DULOXETINE
  6. OXYCODONE [Suspect]
     Active Substance: OXYCODONE

REACTIONS (3)
  - Completed suicide [Fatal]
  - Toxicity to various agents [Fatal]
  - Intentional overdose [Fatal]
